FAERS Safety Report 22186955 (Version 1)
Quarter: 2023Q2

REPORT INFORMATION
  Report Type: Spontaneous
  Country: US (occurrence: None)
  Receive Date: 20230407
  Receipt Date: 20230407
  Transmission Date: 20230722
  Serious: Yes (Hospitalization, Other)
  Sender: FDA-Public Use
  Company Number: 2023A078496

PATIENT

DRUGS (12)
  1. TAGRISSO [Suspect]
     Active Substance: OSIMERTINIB
     Indication: Non-small cell lung cancer
     Route: 048
  2. ROBITUSSIN(GUAIFENESIN) [Concomitant]
     Indication: Product used for unknown indication
  3. ROBITUSSIN(CODEINE) [Concomitant]
     Indication: Product used for unknown indication
  4. NEURONTIN(GABAPENTIN) [Concomitant]
     Indication: Product used for unknown indication
  5. METOPROLOL SUCCINATE [Concomitant]
     Active Substance: METOPROLOL SUCCINATE
     Indication: Product used for unknown indication
  6. DOCUSATE SODIUM (SENNA) [Concomitant]
     Indication: Product used for unknown indication
  7. POLYETHYLENE GLYCOL (MIRILAX) [Concomitant]
     Indication: Product used for unknown indication
  8. OSIMERTINIB (TAGRISSO) [Concomitant]
     Indication: Product used for unknown indication
  9. VALIUM [Concomitant]
     Active Substance: DIAZEPAM
     Indication: Product used for unknown indication
  10. DOXAZOSIN (CARDURA) [Concomitant]
     Indication: Product used for unknown indication
  11. PROSCAR [Concomitant]
     Active Substance: FINASTERIDE
     Indication: Product used for unknown indication
  12. NORVASC [Concomitant]
     Active Substance: AMLODIPINE BESYLATE
     Indication: Product used for unknown indication

REACTIONS (2)
  - Haemoptysis [Not Recovered/Not Resolved]
  - Lymphangiosis carcinomatosa [Unknown]

NARRATIVE: CASE EVENT DATE: 20230206
